FAERS Safety Report 6840012-1 (Version None)
Quarter: 2010Q2

REPORT INFORMATION
  Report Type: 
  Country: None (occurrence: None)
  Receive Date: 20100629
  Receipt Date: 20100304
  Transmission Date: 20101027
  Serious: No
  Sender: FDA-Public Use
  Company Number: US-WYE-H13988910

PATIENT
  Age: 62 Year
  Sex: Female
  Weight: 72.64 kg

DRUGS (6)
  1. PRISTIQ [Suspect]
     Dosage: 100 MG 1X PER 1 DAY, ORAL
     Route: 048
     Dates: start: 20090101
  2. SINGULAIR [Concomitant]
  3. TRAZODONE HCL [Concomitant]
  4. LAMICTAL [Concomitant]
  5. ASPIRIN [Concomitant]
  6. SEROQUEL [Concomitant]

REACTIONS (3)
  - ALCOHOLISM [None]
  - FOOD CRAVING [None]
  - WEIGHT INCREASED [None]
